FAERS Safety Report 7308390-7 (Version None)
Quarter: 2011Q1

REPORT INFORMATION
  Report Type: 
  Country: None (occurrence: None)
  Receive Date: 20110223
  Receipt Date: 20110221
  Transmission Date: 20110831
  Serious: Yes (Other)
  Sender: FDA-Public Use
  Company Number: FR-ABBOTT-11P-056-0705530-00

PATIENT
  Age: 30 Year
  Sex: Male

DRUGS (1)
  1. MONONAXY [Suspect]
     Indication: BRONCHITIS
     Dosage: (2 TABS AM, 2 TABS AT NOON, AND 2 PM)
     Route: 048
     Dates: start: 20110211, end: 20110211

REACTIONS (5)
  - INSOMNIA [None]
  - DIARRHOEA [None]
  - ABDOMINAL PAIN [None]
  - INCORRECT DOSE ADMINISTERED [None]
  - HYPERHIDROSIS [None]
